FAERS Safety Report 9716920 (Version 3)
Quarter: 2015Q3

REPORT INFORMATION
  Report Type: Spontaneous
  Country: US (occurrence: US)
  Receive Date: 20131127
  Receipt Date: 20150803
  Transmission Date: 20151125
  Serious: Yes (Hospitalization)
  Sender: FDA-Public Use
  Company Number: US-GILEAD-2009-0019905

PATIENT
  Age: 58 Year
  Sex: Female
  Weight: 52.16 kg

DRUGS (10)
  1. LISINOPRIL. [Concomitant]
     Active Substance: LISINOPRIL
  2. CORTEF [Concomitant]
     Active Substance: HYDROCORTISONE
  3. SINGULAIR [Concomitant]
     Active Substance: MONTELUKAST SODIUM
  4. BONIVA [Concomitant]
     Active Substance: IBANDRONATE SODIUM
  5. LETAIRIS [Suspect]
     Active Substance: AMBRISENTAN
     Indication: PULMONARY HYPERTENSION
     Route: 048
     Dates: start: 20081013
  6. NORVASC [Concomitant]
     Active Substance: AMLODIPINE BESYLATE
  7. ASA [Concomitant]
     Active Substance: ASPIRIN
  8. ADVAIR DISKU MIS 100/50 [Concomitant]
  9. PLAQUENIL [Concomitant]
     Active Substance: HYDROXYCHLOROQUINE SULFATE
  10. MINOCIN [Concomitant]
     Active Substance: MINOCYCLINE HYDROCHLORIDE

REACTIONS (1)
  - Dyspnoea [Not Recovered/Not Resolved]

NARRATIVE: CASE EVENT DATE: 20090115
